FAERS Safety Report 23313060 (Version 3)
Quarter: 2024Q3

REPORT INFORMATION
  Report Type: Spontaneous
  Country: US (occurrence: US)
  Receive Date: 20231219
  Receipt Date: 20240731
  Transmission Date: 20241016
  Serious: No
  Sender: PFIZER
  Company Number: US-PFIZER INC-PV202300200779

PATIENT
  Age: 57 Year
  Sex: Female

DRUGS (2)
  1. IBRANCE [Suspect]
     Active Substance: PALBOCICLIB
     Indication: Breast cancer metastatic
     Dosage: 125 MG
     Dates: start: 202207
  2. ANASTROZOLE [Concomitant]
     Active Substance: ANASTROZOLE
     Dosage: 1 MG
     Dates: start: 202207

REACTIONS (8)
  - White blood cell count decreased [Unknown]
  - Decreased appetite [Unknown]
  - Neoplasm progression [Unknown]
  - Taste disorder [Unknown]
  - Parosmia [Unknown]
  - Pruritus [Unknown]
  - Sunburn [Unknown]
  - Lip blister [Unknown]
